FAERS Safety Report 5892944-9 (Version None)
Quarter: 2008Q3

REPORT INFORMATION
  Report Type: 
  Country: None (occurrence: None)
  Receive Date: 20080922
  Receipt Date: 20080922
  Transmission Date: 20090109
  Serious: No
  Sender: FDA-Public Use
  Company Number: None

PATIENT
  Sex: Male
  Weight: 122.4712 kg

DRUGS (14)
  1. ADVAIR DISKUS 100/50 [Suspect]
     Indication: ASTHMA
     Dosage: 1 INHALATION 2 TIMES A DAY
     Route: 055
     Dates: start: 20080719, end: 20080819
  2. ADVAIR DISKUS 250/50 [Suspect]
     Indication: ASTHMA
     Dosage: INHALATION 2 TIMES A DAY
     Route: 055
     Dates: start: 20080820, end: 20080902
  3. NORVASC [Concomitant]
  4. LISINOPRIL [Concomitant]
  5. CLONIDINE [Concomitant]
  6. TRICOR [Concomitant]
  7. ZETIA [Concomitant]
  8. DOXAZOSIN MESYLATE [Concomitant]
  9. CETIRIZINE HCL [Concomitant]
  10. PRILOSEC [Concomitant]
  11. FISH OIL [Concomitant]
  12. RESVERATROL [Concomitant]
  13. GLUCOSAMINE/CHOLDROTINE [Concomitant]
  14. MULTIVITIMIN [Concomitant]

REACTIONS (2)
  - APHONIA [None]
  - DYSPNOEA [None]
